FAERS Safety Report 24317910 (Version 1)
Quarter: 2024Q3

REPORT INFORMATION
  Report Type: Other
  Country: IN (occurrence: IN)
  Receive Date: 20240913
  Receipt Date: 20240913
  Transmission Date: 20241016
  Serious: Yes (Other)
  Sender: BIOCON
  Company Number: IN-MLMSERVICE-20240829-PI174069-00147-2

PATIENT

DRUGS (3)
  1. PEGFILGRASTIM [Suspect]
     Active Substance: PEGFILGRASTIM
     Indication: Lung adenocarcinoma
     Dosage: 6 MG 1 CYCLICAL (ON DAY TWO OF EVERY CYCLE) PEGYLATED GRANULOCYTE COLONY-STIMULATING FACTOR
     Route: 058
  2. PEMETREXED [Concomitant]
     Active Substance: PEMETREXED
     Indication: Lung adenocarcinoma
     Dosage: 1 CYCLICAL, NEOADJUVANT CHEMOTHERAPY CYCLES
     Route: 065
  3. CARBOPLATIN [Concomitant]
     Active Substance: CARBOPLATIN
     Indication: Lung adenocarcinoma
     Dosage: 1 CYCLICAL, NEOADJUVANT CHEMOTHERAPY CYCLES
     Route: 065

REACTIONS (1)
  - Vasculitis [Recovered/Resolved]
